FAERS Safety Report 7456468-X (Version None)
Quarter: 2011Q2

REPORT INFORMATION
  Report Type: 
  Country: None (occurrence: None)
  Receive Date: 20110426
  Receipt Date: 20110411
  Transmission Date: 20111010
  Serious: Yes (Hospitalization)
  Sender: FDA-Public Use
  Company Number: 008729

PATIENT
  Age: 59 Year
  Sex: Male

DRUGS (5)
  1. ASPIRIN [Concomitant]
  2. PLETAL [Suspect]
     Indication: ARTERIOSCLEROSIS OBLITERANS
     Dosage: 100 MG, DAILY DOSE
     Route: 048
  3. CLOPIDOGREL BISULFATE [Concomitant]
  4. GASTRIC COATING AGENT (GASTRIC COATING AGENT) [Concomitant]
  5. ANTIPTRETICS, ANALGESICS AND ANTI-INFLAMMATORY AGEN [Concomitant]

REACTIONS (4)
  - HAEMATEMESIS [None]
  - GASTRIC ULCER HAEMORRHAGE [None]
  - DUODENAL ULCER HAEMORRHAGE [None]
  - SHOCK HAEMORRHAGIC [None]
